FAERS Safety Report 8990400 (Version 2)
Quarter: 2013Q2

REPORT INFORMATION
  Report Type: Spontaneous
  Country: JP (occurrence: JP)
  Receive Date: 20121228
  Receipt Date: 20130402
  Transmission Date: 20140414
  Serious: Yes (Hospitalization)
  Sender: FDA-Public Use
  Company Number: JP-ABBOTT-12P-087-1027141-00

PATIENT
  Age: 73 Year
  Sex: Male

DRUGS (6)
  1. LEUPLIN SR [Suspect]
     Indication: PROSTATE CANCER
     Route: 058
     Dates: start: 20121015
  2. PREDONINE [Suspect]
     Indication: CHRONIC OBSTRUCTIVE PULMONARY DISEASE
     Route: 048
     Dates: start: 20121002
  3. PREDONINE [Suspect]
     Indication: ASTHMA
     Route: 048
     Dates: end: 20121113
  4. PREDONINE [Suspect]
     Route: 048
     Dates: start: 20121114
  5. BICALUTAMIDE [Concomitant]
     Indication: PROSTATE CANCER
     Route: 048
     Dates: start: 20121011
  6. URIEF [Concomitant]
     Indication: DYSURIA
     Route: 048
     Dates: start: 20121011

REACTIONS (10)
  - Hepatic function abnormal [Not Recovered/Not Resolved]
  - Aspartate aminotransferase increased [None]
  - Alanine aminotransferase increased [None]
  - Gamma-glutamyltransferase increased [None]
  - Blood lactate dehydrogenase increased [None]
  - Red blood cell count decreased [None]
  - Blood glucose increased [None]
  - Haematocrit decreased [None]
  - Haemoglobin decreased [None]
  - Platelet count decreased [None]
